FAERS Safety Report 24116877 (Version 1)
Quarter: 2024Q3

REPORT INFORMATION
  Report Type: Report from Study
  Country: JP (occurrence: JP)
  Receive Date: 20240722
  Receipt Date: 20240722
  Transmission Date: 20241016
  Serious: Yes (Other)
  Sender: ROCHE
  Company Number: JP-ROCHE-10000030420

PATIENT
  Age: 64 Year
  Sex: Female

DRUGS (6)
  1. BEVACIZUMAB [Suspect]
     Active Substance: BEVACIZUMAB
     Indication: Ovarian epithelial cancer
     Route: 065
  2. PACLITAXEL [Suspect]
     Active Substance: PACLITAXEL
     Indication: Ovarian epithelial cancer
     Route: 065
  3. CARBOPLATIN [Suspect]
     Active Substance: CARBOPLATIN
     Indication: Ovarian epithelial cancer
     Route: 065
  4. GEMCITABINE [Suspect]
     Active Substance: GEMCITABINE
     Indication: Ovarian epithelial cancer
     Route: 065
  5. IRINOTECAN [Suspect]
     Active Substance: IRINOTECAN
     Indication: Ovarian epithelial cancer
     Route: 065
  6. OLAPARIB [Suspect]
     Active Substance: OLAPARIB
     Indication: Ovarian epithelial cancer
     Route: 065

REACTIONS (1)
  - Myelodysplastic syndrome [Unknown]
